FAERS Safety Report 24548417 (Version 3)
Quarter: 2025Q2

REPORT INFORMATION
  Report Type: Spontaneous
  Country: US (occurrence: US)
  Receive Date: 20241025
  Receipt Date: 20250626
  Transmission Date: 20250717
  Serious: Yes (Hospitalization, Other)
  Sender: BAYER HEALTHCARE PHARMACEUTICALS INC.
  Company Number: US-BAYER-2024A150059

PATIENT
  Age: 63 Year
  Sex: Female

DRUGS (15)
  1. ADEMPAS [Suspect]
     Active Substance: RIOCIGUAT
     Indication: Pulmonary hypertension
  2. ADEMPAS [Suspect]
     Active Substance: RIOCIGUAT
     Indication: Pulmonary hypertension
     Dosage: 2.5 MG, TID
     Route: 048
     Dates: start: 20230131
  3. ADEMPAS [Suspect]
     Active Substance: RIOCIGUAT
     Indication: Pulmonary hypertension
     Dosage: 2.5 MG, TID
     Route: 048
     Dates: start: 20230131
  4. ALBUTEROL [Concomitant]
     Active Substance: ALBUTEROL
  5. FUROSEMIDE [Concomitant]
     Active Substance: FUROSEMIDE
  6. ALBUTEROL SULFATE [Concomitant]
     Active Substance: ALBUTEROL SULFATE
  7. ATORVASTATIN [Concomitant]
     Active Substance: ATORVASTATIN
  8. WARFARIN [Concomitant]
     Active Substance: WARFARIN
  9. LIDOCAINE [Concomitant]
     Active Substance: LIDOCAINE
  10. TIZANIDINE [Concomitant]
     Active Substance: TIZANIDINE
  11. ESTRACE [Concomitant]
     Active Substance: ESTRADIOL
  12. HYDROXYZINE [Concomitant]
     Active Substance: HYDROXYZINE HYDROCHLORIDE
  13. SENNA [Concomitant]
     Active Substance: SENNOSIDES
  14. HYDROQUINONE [Concomitant]
     Active Substance: HYDROQUINONE
  15. NITROFURANTOIN [Concomitant]
     Active Substance: NITROFURANTOIN

REACTIONS (5)
  - Haematuria [None]
  - Uterine leiomyoma [None]
  - Urinary tract infection [Recovering/Resolving]
  - Urinary tract infection [Recovered/Resolved]
  - Sepsis [Recovered/Resolved]

NARRATIVE: CASE EVENT DATE: 20250223
